FAERS Safety Report 9293153 (Version 2)
Quarter: 2013Q2

REPORT INFORMATION
  Report Type: Spontaneous
  Country: NL (occurrence: None)
  Receive Date: 20130514
  Receipt Date: 20130516
  Transmission Date: 20140414
  Serious: Yes (Other)
  Sender: FDA-Public Use
  Company Number: 2013AP005167

PATIENT
  Age: 72 Year
  Sex: Female

DRUGS (2)
  1. PRAVASTATIN [Suspect]
  2. WARFARIN [Concomitant]

REACTIONS (8)
  - Blue toe syndrome [None]
  - Abdominal discomfort [None]
  - Fat embolism [None]
  - Eosinophilia [None]
  - C-reactive protein increased [None]
  - Skin lesion [None]
  - Pain [None]
  - Arteriosclerosis [None]
